FAERS Safety Report 11192628 (Version 5)
Quarter: 2015Q3

REPORT INFORMATION
  Report Type: Spontaneous
  Country: US (occurrence: US)
  Receive Date: 20150616
  Receipt Date: 20150930
  Transmission Date: 20151125
  Serious: No
  Sender: FDA-Public Use
  Company Number: US-PFIZER INC-2015200869

PATIENT
  Age: 11 Year
  Sex: Male
  Weight: 49 kg

DRUGS (1)
  1. QUILLIVANT XR [Suspect]
     Active Substance: METHYLPHENIDATE HYDROCHLORIDE
     Indication: ATTENTION DEFICIT/HYPERACTIVITY DISORDER
     Dosage: 2 ML, 1X/DAY  (IN THE MORNING)
     Route: 048
     Dates: start: 20150603, end: 2015

REACTIONS (4)
  - Drug ineffective [Recovered/Resolved]
  - Disturbance in attention [Recovered/Resolved]
  - Abnormal behaviour [Recovered/Resolved]
  - Product quality issue [Recovered/Resolved]

NARRATIVE: CASE EVENT DATE: 201506
